FAERS Safety Report 10146093 (Version 1)
Quarter: 2014Q2

REPORT INFORMATION
  Report Type: Spontaneous
  Country: US (occurrence: None)
  Receive Date: 20140430
  Receipt Date: 20140430
  Transmission Date: 20141212
  Serious: Yes (Death)
  Sender: FDA-Public Use
  Company Number: None

PATIENT
  Age: 87 Year
  Sex: Female

DRUGS (13)
  1. WARFARIN [Suspect]
     Indication: ATRIAL FIBRILLATION
     Route: 048
     Dates: start: 20131228
  2. POTASSIUM CHLORIDE [Concomitant]
  3. ATORVASTATIN [Concomitant]
  4. TRAZODONE [Concomitant]
  5. LANSOPRAZOLE [Concomitant]
  6. FUROSEMIDE [Concomitant]
  7. ASPIRIN [Concomitant]
  8. NYSTATIN [Concomitant]
  9. TRYPSAN-BALSAM PERU CASTOR OIL [Concomitant]
  10. ACETAMINOPHEN [Concomitant]
  11. AMIODARONE [Concomitant]
  12. METOPROLOL [Concomitant]
  13. FERROUS SULFATE [Concomitant]

REACTIONS (4)
  - Upper gastrointestinal haemorrhage [None]
  - International normalised ratio increased [None]
  - Haemoglobin decreased [None]
  - Atrial fibrillation [None]
